FAERS Safety Report 5280209-8 (Version None)
Quarter: 2007Q1

REPORT INFORMATION
  Report Type: 
  Country: None (occurrence: None)
  Receive Date: 20070326
  Receipt Date: 20070326
  Transmission Date: 20070707
  Serious: Yes (Death, Hospitalization)
  Sender: FDA-Public Use
  Company Number: None

PATIENT
  Sex: Male
  Weight: 105.7 kg

DRUGS (1)
  1. BEVACIZUMAB (RHUMABVEGF)(704865) [Suspect]

REACTIONS (2)
  - ARTERIAL HAEMORRHAGE [None]
  - RECTAL HAEMORRHAGE [None]
